FAERS Safety Report 6710312-4 (Version None)
Quarter: 2010Q2

REPORT INFORMATION
  Report Type: 
  Country: None (occurrence: None)
  Receive Date: 20100504
  Receipt Date: 20100421
  Transmission Date: 20101027
  Serious: Yes (Other)
  Sender: FDA-Public Use
  Company Number: PHHY2010FR25433

PATIENT
  Sex: Female

DRUGS (6)
  1. GLEEVEC [Suspect]
     Indication: CHRONIC MYELOID LEUKAEMIA
     Dosage: 400 MG DAILY
     Dates: start: 20080701
  2. SPRYCEL [Suspect]
     Indication: CHRONIC MYELOID LEUKAEMIA
     Dosage: 100 MG DAILY
     Dates: start: 20090306
  3. SPRYCEL [Suspect]
     Dosage: 80 MG DAILY
     Dates: start: 20090330, end: 20090411
  4. SPRYCEL [Suspect]
     Dosage: 80 MG DAILY
     Dates: start: 20090503, end: 20090525
  5. SPRYCEL [Suspect]
     Dosage: 50 MG DAILY
     Dates: start: 20090903
  6. ARANESP [Suspect]
     Indication: ANAEMIA
     Dosage: 300 MG, QW
     Dates: start: 20090306, end: 20090525

REACTIONS (7)
  - ANAEMIA [None]
  - BASAL CELL CARCINOMA [None]
  - DRUG INEFFECTIVE [None]
  - HAEMATOTOXICITY [None]
  - NEOPLASM MALIGNANT [None]
  - NEUTROPENIA [None]
  - THROMBOCYTOPENIA [None]
